FAERS Safety Report 13278414 (Version 5)
Quarter: 2017Q1

REPORT INFORMATION
  Report Type: Report from Study
  Country: BR (occurrence: BR)
  Receive Date: 20170228
  Receipt Date: 20170324
  Transmission Date: 20170428
  Serious: Yes (Life-Threatening, Hospitalization, Congenital Anomaly, Other)
  Sender: FDA-Public Use
  Company Number: BR-BRISTOL-MYERS SQUIBB COMPANY-BMS-2017-009368

PATIENT
  Sex: Female

DRUGS (3)
  1. EFAVIRENZ [Suspect]
     Active Substance: EFAVIRENZ
     Indication: PROPHYLAXIS AGAINST HIV INFECTION
     Dosage: 600 MG, QD
     Route: 064
     Dates: start: 20161223, end: 20170201
  2. CEFALEXIN [Suspect]
     Active Substance: CEPHALEXIN
     Indication: PRODUCT USED FOR UNKNOWN INDICATION
     Dosage: UNK
     Route: 064
     Dates: start: 20161223, end: 20161230
  3. LAMIVUDINE,ZIDOVUDINE [Suspect]
     Active Substance: LAMIVUDINE\ZIDOVUDINE
     Indication: PROPHYLAXIS AGAINST HIV INFECTION
     Dosage: 450 MG, Q12H
     Route: 064
     Dates: start: 20161223, end: 20170201

REACTIONS (20)
  - Dandy-Walker syndrome [Unknown]
  - Cerebral calcification [Unknown]
  - Cerebral cyst [Unknown]
  - HIV infection [Unknown]
  - Congenital cytomegalovirus infection [Not Recovered/Not Resolved]
  - Foetal cardiac disorder [Unknown]
  - Cardiomegaly [Not Recovered/Not Resolved]
  - Skull malformation [Unknown]
  - Congenital central nervous system anomaly [Unknown]
  - Haemoglobin decreased [Recovering/Resolving]
  - Foetal exposure during pregnancy [Unknown]
  - Premature baby [Unknown]
  - Platelet transfusion [Unknown]
  - Foetal growth restriction [Unknown]
  - Platelet count decreased [Not Recovered/Not Resolved]
  - Pneumonia cytomegaloviral [Unknown]
  - Atrial septal defect [Not Recovered/Not Resolved]
  - Cerebral ventricle dilatation [Unknown]
  - Transfusion [Unknown]
  - Microcephaly [Unknown]

NARRATIVE: CASE EVENT DATE: 20170116
